FAERS Safety Report 9412870 (Version 2)
Quarter: 2013Q3

REPORT INFORMATION
  Report Type: Spontaneous
  Country: GB (occurrence: GB)
  Receive Date: 20130722
  Receipt Date: 20130812
  Transmission Date: 20140515
  Serious: Yes (Death, Hospitalization)
  Sender: FDA-Public Use
  Company Number: PHHY2013GB077003

PATIENT
  Age: 48 Year
  Sex: Female

DRUGS (12)
  1. CITALOPRAM [Suspect]
     Dosage: 40 MG, QD
     Route: 048
  2. ONDANSETRON [Suspect]
     Dosage: 4 MG, TID WHEN REQUIRED
     Dates: start: 20120626
  3. ZOPICLONE [Concomitant]
     Dosage: 1 OT, 7.5-15MG TAKEN AT NIGHT
     Route: 048
  4. ORAMORPH [Concomitant]
     Dosage: 30 MG, QID WHEN REQUIRED
     Route: 048
     Dates: start: 20120626
  5. CHLORPHENAMINE [Concomitant]
     Dosage: 8 MG, TID
     Route: 048
  6. CHLORDIAZEPOXIDE [Concomitant]
     Dosage: 10 MG, BID
     Route: 050
  7. LEVOTHYROXINE [Concomitant]
     Dosage: 50 UG, QD
     Route: 048
  8. OMEPRAZOLE [Concomitant]
     Dosage: 40 MG, BID
     Route: 048
  9. PARACETAMOL [Concomitant]
     Dosage: 1 G, QID
  10. LOPERAMIDE [Concomitant]
     Dosage: 1 OT, 2-4MG TWICE DAILY
  11. SALBUTAMOL [Concomitant]
     Route: 055
  12. BECONASE [Concomitant]

REACTIONS (12)
  - Torsade de pointes [Fatal]
  - Tremor [Not Recovered/Not Resolved]
  - Vomiting [Not Recovered/Not Resolved]
  - Diarrhoea [Not Recovered/Not Resolved]
  - Psychiatric symptom [Not Recovered/Not Resolved]
  - Hallucination [Not Recovered/Not Resolved]
  - C-reactive protein increased [Not Recovered/Not Resolved]
  - Hypokalaemia [Not Recovered/Not Resolved]
  - Hepatic steatosis [Not Recovered/Not Resolved]
  - Pulmonary oedema [Not Recovered/Not Resolved]
  - Ischaemia [Not Recovered/Not Resolved]
  - Electrolyte imbalance [Not Recovered/Not Resolved]
